FAERS Safety Report 21476894 (Version 1)
Quarter: 2022Q4

REPORT INFORMATION
  Report Type: Spontaneous
  Country: JP (occurrence: None)
  Receive Date: 20221019
  Receipt Date: 20221019
  Transmission Date: 20230112
  Serious: Yes (Other)
  Sender: FDA-Public Use
  Company Number: 2022A345028

PATIENT
  Age: 66 Year
  Sex: Female

DRUGS (3)
  1. GEFITINIB [Suspect]
     Active Substance: GEFITINIB
     Indication: Adenosquamous cell lung cancer
     Route: 048
  2. CARBOPLATIN [Concomitant]
     Active Substance: CARBOPLATIN
  3. PEMETREXED [Concomitant]
     Active Substance: PEMETREXED

REACTIONS (2)
  - Metastases to lung [Recovering/Resolving]
  - Drug resistance [Unknown]
